FAERS Safety Report 6466912-2 (Version None)
Quarter: 2009Q4

REPORT INFORMATION
  Report Type: 
  Country: None (occurrence: None)
  Receive Date: 20091202
  Receipt Date: 20091119
  Transmission Date: 20100525
  Serious: Yes (Hospitalization, Other)
  Sender: FDA-Public Use
  Company Number: GB-PFIZER INC-2009299955

PATIENT
  Age: 55 Year
  Sex: Female
  Weight: 60 kg

DRUGS (11)
  1. GABAPENTIN [Suspect]
     Indication: MUSCULOSKELETAL PAIN
     Dosage: 600 MG, 3X/DAY
     Route: 048
     Dates: start: 20050501
  2. FENTANYL CITRATE [Interacting]
     Indication: GENERAL ANAESTHESIA
     Dosage: 50 MG, SINGLE
     Route: 042
     Dates: start: 20050701, end: 20050701
  3. FENTANYL CITRATE [Interacting]
     Indication: INDUCTION OF ANAESTHESIA
     Dosage: 0.1 MG, SINGLE
     Route: 042
     Dates: start: 20060601
  4. PROPOFOL [Interacting]
     Indication: GENERAL ANAESTHESIA
     Dosage: 150 MG, 1X/DAY
     Route: 042
     Dates: start: 20050701
  5. PROPOFOL [Interacting]
     Indication: INDUCTION OF ANAESTHESIA
     Dosage: UNK
     Route: 042
     Dates: start: 20060601
  6. ALFENTANIL [Interacting]
     Indication: GENERAL ANAESTHESIA
     Dosage: 0.5 MG, SINGLE
     Route: 042
     Dates: start: 20050701
  7. ISOFLURANE [Interacting]
     Indication: MAINTENANCE OF ANAESTHESIA
     Dosage: UNK
     Route: 055
     Dates: start: 20060601, end: 20060601
  8. CODEINE PHOSPHATE [Concomitant]
     Indication: MUSCULOSKELETAL PAIN
     Dosage: 50 MG, AS NEEDED
  9. DEXAMETHASONE [Concomitant]
     Dosage: UNK
     Route: 042
  10. OXYGEN [Concomitant]
     Indication: MAINTENANCE OF ANAESTHESIA
     Dosage: UNK
     Route: 055
     Dates: start: 20060601
  11. PARACETAMOL [Concomitant]
     Indication: MUSCULOSKELETAL PAIN
     Dosage: 1 G, AS NEEDED
     Route: 048

REACTIONS (2)
  - DRUG INTERACTION [None]
  - MYOCLONUS [None]
